FAERS Safety Report 13017270 (Version 1)
Quarter: 2016Q4

REPORT INFORMATION
  Report Type: Spontaneous
  Country: ES (occurrence: ES)
  Receive Date: 20161212
  Receipt Date: 20161212
  Transmission Date: 20170207
  Serious: Yes (Life-Threatening, Hospitalization, Other)
  Sender: FDA-Public Use
  Company Number: ES-GLENMARK PHARMACEUTICALS INC, USA.-2016GMK025305

PATIENT

DRUGS (8)
  1. LINEZOLID. [Interacting]
     Active Substance: LINEZOLID
     Indication: SKIN ULCER
     Dosage: 600 MG, BID  (PER 12 HRS)
     Route: 048
  2. VITAMIN B6 [Interacting]
     Active Substance: PYRIDOXINE HYDROCHLORIDE
     Indication: FATIGUE
  3. VITAMIN B6 [Interacting]
     Active Substance: PYRIDOXINE HYDROCHLORIDE
     Indication: DEPRESSION
     Dosage: 200 MG, TID (PER 8 HRS)
     Route: 065
  4. LINEZOLID. [Suspect]
     Active Substance: LINEZOLID
     Indication: PYREXIA
     Dosage: 600 MG, BID (PER 12 HRS)
     Route: 042
  5. 5 HTP /00439301/ [Interacting]
     Active Substance: OXITRIPTAN
     Indication: FATIGUE
  6. MAGNESIUM [Interacting]
     Active Substance: MAGNESIUM
     Indication: FATIGUE
  7. 5 HTP /00439301/ [Interacting]
     Active Substance: OXITRIPTAN
     Indication: DEPRESSION
     Dosage: 200 MG, (PER 8 HRS)
     Route: 065
  8. MAGNESIUM [Interacting]
     Active Substance: MAGNESIUM
     Indication: DEPRESSION
     Dosage: 200 MG, TID (PER 8 HRS)
     Route: 065

REACTIONS (3)
  - Drug interaction [Recovered/Resolved]
  - Self-medication [Unknown]
  - Serotonin syndrome [Recovered/Resolved]
